FAERS Safety Report 24613571 (Version 1)
Quarter: 2024Q4

REPORT INFORMATION
  Report Type: Spontaneous
  Country: GR (occurrence: GR)
  Receive Date: 20241113
  Receipt Date: 20241113
  Transmission Date: 20250115
  Serious: Yes (Hospitalization)
  Sender: SANDOZ
  Company Number: GR-AMGEN-GRCSP2024216065

PATIENT
  Age: 24 Year
  Sex: Male

DRUGS (1)
  1. ADALIMUMAB [Suspect]
     Active Substance: ADALIMUMAB
     Indication: Ankylosing spondylitis
     Dosage: UNK, Q2WK
     Route: 058

REACTIONS (1)
  - Familial mediterranean fever [Recovered/Resolved]

NARRATIVE: CASE EVENT DATE: 20230601
